FAERS Safety Report 9898928 (Version 1)
Quarter: 2014Q1

REPORT INFORMATION
  Report Type: Spontaneous
  Country: IT (occurrence: IT)
  Receive Date: 20140214
  Receipt Date: 20140214
  Transmission Date: 20141002
  Serious: Yes (Hospitalization, Other)
  Sender: FDA-Public Use
  Company Number: IT-ELI_LILLY_AND_COMPANY-IT201402001243

PATIENT
  Age: 13 Year
  Sex: Male
  Weight: 45 kg

DRUGS (2)
  1. HUMALOG LISPRO [Suspect]
     Indication: DIABETES MELLITUS
     Dosage: 10 DF, PRN
     Route: 065
     Dates: start: 20130623
  2. LEVEMIR [Suspect]
     Indication: DIABETES MELLITUS
     Dosage: 33 DF, PRN
     Route: 065
     Dates: start: 20130623

REACTIONS (6)
  - Hypoglycaemic coma [Recovered/Resolved]
  - Hypoglycaemic unconsciousness [Recovered/Resolved]
  - Asthenia [Recovered/Resolved]
  - Tremor [Recovered/Resolved]
  - Headache [Recovered/Resolved]
  - Blood glucose increased [Unknown]
